FAERS Safety Report 8400066-8 (Version None)
Quarter: 2012Q2

REPORT INFORMATION
  Report Type: 
  Country: None (occurrence: None)
  Receive Date: 20120531
  Receipt Date: 20120523
  Transmission Date: 20120825
  Serious: Yes (Life-Threatening)
  Sender: FDA-Public Use
  Company Number: JP-FRI-1000030751

PATIENT
  Sex: Male

DRUGS (9)
  1. MEMANTINE HCL [Suspect]
  2. GRAMALIL [Concomitant]
     Indication: DEMENTIA
     Dosage: 75 MG
     Dates: start: 20120413, end: 20120513
  3. URSO 250 [Concomitant]
     Indication: CHRONIC HEPATITIS
     Dosage: 300 MG
     Dates: start: 20120113, end: 20120513
  4. REBAMIPIDE [Concomitant]
     Indication: GASTRITIS
     Dates: start: 20120113, end: 20120513
  5. NOCBIN [Concomitant]
     Indication: ALCOHOLISM
     Dosage: 0.2 G
     Dates: start: 20120113, end: 20120513
  6. MEMANTINE HCL [Suspect]
     Dosage: 15 MG
     Route: 048
     Dates: start: 20120510, end: 20120513
  7. ARICEPT [Suspect]
     Dosage: 10 MG
     Dates: start: 20120510, end: 20120513
  8. MEMANTINE HCL [Suspect]
     Indication: DEMENTIA
     Dosage: 10 MG
     Route: 048
     Dates: start: 20120428, end: 20120509
  9. ARICEPT [Suspect]
     Indication: DEMENTIA
     Dosage: 5 MG
     Route: 048
     Dates: start: 20120406, end: 20120509

REACTIONS (1)
  - STATUS EPILEPTICUS [None]
